FAERS Safety Report 15291005 (Version 2)
Quarter: 2018Q4

REPORT INFORMATION
  Report Type: Spontaneous
  Country: BE (occurrence: BE)
  Receive Date: 20180817
  Receipt Date: 20181231
  Transmission Date: 20190204
  Serious: Yes (Death)
  Sender: FDA-Public Use
  Company Number: PHHY2018BE070124

PATIENT
  Age: 48 Year
  Sex: Male

DRUGS (4)
  1. METHYLPREDNISOLONE. [Suspect]
     Active Substance: METHYLPREDNISOLONE
     Indication: CROHN^S DISEASE
     Dosage: UNK
     Route: 065
  2. AZATHIOPRINE. [Suspect]
     Active Substance: AZATHIOPRINE
     Indication: CROHN^S DISEASE
     Dosage: UNK
     Route: 065
  3. ADALIMUMAB [Suspect]
     Active Substance: ADALIMUMAB
     Indication: CROHN^S DISEASE
     Dosage: UNK
     Route: 065
  4. INFLIXIMAB [Suspect]
     Active Substance: INFLIXIMAB
     Indication: CROHN^S DISEASE
     Dosage: UNK
     Route: 065

REACTIONS (10)
  - Hemiparesis [Fatal]
  - Headache [Fatal]
  - Central nervous system lesion [Fatal]
  - Astrocytoma [Fatal]
  - Blindness transient [Fatal]
  - Micturition urgency [Fatal]
  - Papilloedema [Fatal]
  - Gliomatosis cerebri [Fatal]
  - Malaise [Fatal]
  - Aphasia [Fatal]
